FAERS Safety Report 6557235-1 (Version None)
Quarter: 2010Q1

REPORT INFORMATION
  Report Type: 
  Country: None (occurrence: None)
  Receive Date: 20100125
  Receipt Date: 20100111
  Transmission Date: 20100710
  Serious: Yes (Hospitalization)
  Sender: FDA-Public Use
  Company Number: ALDI-FR-2010-0001

PATIENT
  Age: 31 Year
  Sex: Female

DRUGS (1)
  1. ALDOMET [Suspect]
     Indication: HYPERTENSION
     Dosage: 250 MG (1 IN 1 D), ORAL
     Route: 048
     Dates: start: 20091009, end: 20091111

REACTIONS (5)
  - CHOLELITHIASIS [None]
  - CHOLESTASIS [None]
  - CYTOLYTIC HEPATITIS [None]
  - HEPATITIS ACUTE [None]
  - PROTHROMBIN LEVEL DECREASED [None]
